FAERS Safety Report 7786194-9 (Version None)
Quarter: 2011Q3

REPORT INFORMATION
  Report Type: 
  Country: None (occurrence: None)
  Receive Date: 20110929
  Receipt Date: 20110706
  Transmission Date: 20111222
  Serious: No
  Sender: FDA-Public Use
  Company Number: US-BAYER-2011-059982

PATIENT
  Age: 38 Year
  Sex: Female
  Weight: 63.492 kg

DRUGS (1)
  1. ALEVE [Suspect]
     Indication: DYSMENORRHOEA
     Dosage: 2 TABS TWICE DAILY
     Route: 048
     Dates: start: 20110705, end: 20110706

REACTIONS (2)
  - FEELING JITTERY [None]
  - NO ADVERSE EVENT [None]
